FAERS Safety Report 8400274-6 (Version None)
Quarter: 2012Q2

REPORT INFORMATION
  Report Type: 
  Country: None (occurrence: None)
  Receive Date: 20120531
  Receipt Date: 20120521
  Transmission Date: 20120825
  Serious: Yes (Hospitalization)
  Sender: FDA-Public Use
  Company Number: FR-TEVA-340582ISR

PATIENT
  Age: 72 Year
  Sex: Female

DRUGS (5)
  1. DITROPAN [Suspect]
     Dates: start: 20071101, end: 20111001
  2. AZILECT [Suspect]
     Indication: PARKINSONISM
     Dates: start: 20110701, end: 20111001
  3. XENAZINE [Suspect]
     Dates: start: 20071001, end: 20100301
  4. CYMBALTA [Suspect]
     Dates: start: 20091101, end: 20111001
  5. EXELON [Suspect]
     Dates: start: 20110901, end: 20111001

REACTIONS (6)
  - IATROGENIC INJURY [None]
  - PARKINSONISM [None]
  - CEREBRAL DISORDER [None]
  - LEUKOENCEPHALOPATHY [None]
  - CEREBRAL ATROPHY [None]
  - COGNITIVE DISORDER [None]
